FAERS Safety Report 7989776 (Version 2)
Quarter: 2013Q1

REPORT INFORMATION
  Report Type: Spontaneous
  Country: US (occurrence: None)
  Receive Date: 20110525
  Receipt Date: 20130225
  Transmission Date: 20140127
  Serious: Yes (Hospitalization)
  Sender: FDA-Public Use
  Company Number: 2011AP000999

PATIENT
  Age: 45 Year
  Sex: Female

DRUGS (11)
  1. LEVETIRACETAM [Suspect]
     Indication: PARTIAL SEIZURES
     Dosage: 500 MG, BID
  2. METHIMAZOLE [Concomitant]
  3. DEXTROPROPOXYPHENE [Concomitant]
  4. PARACETAMOL [Concomitant]
  5. ALENDRONATE SODIUM [Concomitant]
  6. PANTOPRAZOLE [Concomitant]
  7. INSULIN NOS [Concomitant]
  8. FEXOFENADINE [Concomitant]
  9. ATENOLOL [Concomitant]
  10. SALBUTAMOL SULFATE W/IPRATROPIUM [Concomitant]
  11. OXYGEN [Concomitant]

REACTIONS (3)
  - Acute generalised exanthematous pustulosis [None]
  - Pain [None]
  - Body temperature decreased [None]
